FAERS Safety Report 9891937 (Version 1)
Quarter: 2014Q1

REPORT INFORMATION
  Report Type: Spontaneous
  Country: KR (occurrence: KR)
  Receive Date: 20140212
  Receipt Date: 20140212
  Transmission Date: 20141002
  Serious: Yes (Death, Hospitalization)
  Sender: FDA-Public Use
  Company Number: KR-BAYER-2014-020597

PATIENT
  Age: 55 Year
  Sex: Male

DRUGS (1)
  1. SORAFENIB (RAF KINASE INHIBITOR) [Suspect]
     Indication: HEPATOCELLULAR CARCINOMA
     Dosage: 400 MG, BID
     Route: 048

REACTIONS (4)
  - Liver abscess [None]
  - Hypophagia [None]
  - Hepatocellular carcinoma [Fatal]
  - Hepatic failure [Fatal]
